FAERS Safety Report 6235928-3 (Version None)
Quarter: 2009Q2

REPORT INFORMATION
  Report Type: 
  Country: None (occurrence: None)
  Receive Date: 20090619
  Receipt Date: 20090610
  Transmission Date: 20091009
  Serious: Yes (Hospitalization)
  Sender: FDA-Public Use
  Company Number: PHEH2009US05988

PATIENT
  Sex: Male

DRUGS (8)
  1. TASIGNA [Suspect]
     Indication: CHRONIC MYELOID LEUKAEMIA
     Dosage: 400 MG, Q12H
     Route: 048
     Dates: start: 20080601
  2. TRAZODONE HCL [Concomitant]
  3. IRON [Concomitant]
  4. ASCORBIC ACID [Concomitant]
  5. SIMVASTATIN [Concomitant]
  6. LISINOPRIL [Concomitant]
  7. METFORMIN HCL [Concomitant]
  8. PLAVIX [Concomitant]

REACTIONS (2)
  - HOSPITALISATION [None]
  - MEDICATION ERROR [None]
